FAERS Safety Report 7575472-4 (Version None)
Quarter: 2011Q2

REPORT INFORMATION
  Report Type: 
  Country: None (occurrence: None)
  Receive Date: 20110627
  Receipt Date: 20110623
  Transmission Date: 20111010
  Serious: Yes (Death, Hospitalization, Other)
  Sender: FDA-Public Use
  Company Number: US-ASTRAZENECA-2011SE37955

PATIENT
  Age: 58 Year
  Sex: Male

DRUGS (29)
  1. ZOFRAN [Concomitant]
     Indication: NAUSEA
     Dosage: Q6H PRN
  2. MEGACE [Concomitant]
     Route: 048
     Dates: end: 20101117
  3. MORPHINE [Concomitant]
     Indication: PAIN
     Route: 048
     Dates: end: 20101117
  4. DEXAMETHASONE [Concomitant]
     Route: 048
     Dates: end: 20101117
  5. SEROQUEL [Suspect]
     Indication: DEPRESSION
     Route: 048
     Dates: start: 20060101, end: 20101117
  6. SEROQUEL [Suspect]
     Route: 048
     Dates: end: 20101117
  7. TYLENOL-500 [Concomitant]
     Indication: PYREXIA
     Dosage: 500MG TO 1000MG Q4H PRN
  8. LACTULOSE [Concomitant]
     Indication: CONSTIPATION
     Dosage: IN WATER Q2-4H PRN
  9. ASPIRIN [Concomitant]
     Route: 048
     Dates: end: 20101117
  10. PREVACID [Concomitant]
     Route: 048
     Dates: end: 20101117
  11. MIRALAX [Concomitant]
     Indication: CONSTIPATION
     Dosage: IN 8 OZ WATER Q2-4H PRN
  12. LAXATIVE [Concomitant]
     Indication: CONSTIPATION
     Dosage: 1-2 TABS Q4H
     Route: 048
  13. PLAVIX [Concomitant]
     Route: 048
     Dates: end: 20101117
  14. TYLENOL-500 [Concomitant]
     Indication: PAIN
     Dosage: 500MG TO 1000MG Q4H PRN
  15. VISCADOL [Concomitant]
     Indication: CONSTIPATION
     Dosage: 1-3 TAB PRN
     Route: 048
  16. SEROQUEL [Suspect]
     Indication: SLEEP DISORDER
     Route: 048
     Dates: start: 20060101, end: 20101117
  17. SEROQUEL [Suspect]
     Route: 048
     Dates: end: 20101117
  18. STOOL SOFTENER [Concomitant]
     Indication: CONSTIPATION
  19. DILANTIN [Concomitant]
     Route: 048
     Dates: end: 20101117
  20. MULTI-VITAMIN [Concomitant]
     Route: 048
     Dates: end: 20101117
  21. MORPHINE [Concomitant]
     Route: 048
     Dates: end: 20101117
  22. KLONOPIN [Concomitant]
     Route: 048
     Dates: end: 20101117
  23. BENZOTROPAMINE [Concomitant]
     Route: 048
     Dates: end: 20101117
  24. SEROQUEL [Suspect]
     Route: 048
     Dates: end: 20101117
  25. SEROQUEL [Suspect]
     Route: 048
     Dates: end: 20101117
  26. OXYCODONE HCL [Concomitant]
     Indication: PAIN
     Dosage: Q4-6H PRN
  27. ZOFRAN [Concomitant]
     Indication: VOMITING
     Dosage: Q6H PRN
  28. NITROGLYCERIN [Concomitant]
     Indication: CHEST PAIN
     Dosage: 0.4MG EVERY 5 MIN PRN CHEST PAIN X 3 DOSES
     Route: 060
  29. VENTOLIN HFA [Concomitant]
     Route: 055
     Dates: end: 20101117

REACTIONS (10)
  - METASTASES TO CENTRAL NERVOUS SYSTEM [None]
  - METASTASES TO KIDNEY [None]
  - RADIOTHERAPY [None]
  - SPINAL FRACTURE [None]
  - METASTASES TO BONE [None]
  - METASTASES TO PANCREAS [None]
  - ADENOCARCINOMA [None]
  - METASTASES TO LIVER [None]
  - METASTASES TO GALLBLADDER [None]
  - CHEMOTHERAPY [None]
